FAERS Safety Report 9842763 (Version 1)
Quarter: 2014Q1

REPORT INFORMATION
  Report Type: Report from Study
  Country: US (occurrence: CA)
  Receive Date: 20140124
  Receipt Date: 20140124
  Transmission Date: 20141002
  Serious: Yes (Hospitalization)
  Sender: FDA-Public Use
  Company Number: CA-TEVA-458323USA

PATIENT
  Age: 70 Year
  Sex: Female

DRUGS (1)
  1. BENDAMUSTINE [Suspect]
     Indication: NON-HODGKIN^S LYMPHOMA
     Dosage: 120 MG/M2
     Route: 042

REACTIONS (1)
  - Gastric ulcer [Not Recovered/Not Resolved]
